FAERS Safety Report 18437064 (Version 9)
Quarter: 2023Q4

REPORT INFORMATION
  Report Type: Report from Study
  Country: AU (occurrence: AU)
  Receive Date: 20201028
  Receipt Date: 20231027
  Transmission Date: 20240109
  Serious: Yes (Other)
  Sender: FDA-Public Use
  Company Number: NVSC2020AU285419

PATIENT
  Age: 56 Year
  Sex: Female
  Weight: 56 kg

DRUGS (16)
  1. KYMRIAH [Suspect]
     Active Substance: TISAGENLECLEUCEL
     Indication: Follicular lymphoma
     Dosage: 2.6 10E8 CELLS
     Route: 042
     Dates: start: 20190724
  2. CYCLOPHOSPHAMIDE [Suspect]
     Active Substance: CYCLOPHOSPHAMIDE
     Indication: Chemotherapy
     Dosage: UNK
     Route: 065
     Dates: start: 20190718, end: 20190720
  3. FLUDARABINE [Suspect]
     Active Substance: FLUDARABINE PHOSPHATE
     Indication: Chemotherapy
     Dosage: UNK
     Route: 065
     Dates: start: 20190718, end: 20190720
  4. ACETAMINOPHEN [Concomitant]
     Active Substance: ACETAMINOPHEN
     Indication: Lower respiratory tract infection
     Dosage: UNK
     Route: 065
     Dates: start: 20200429, end: 20200429
  5. OXYCODONE [Concomitant]
     Active Substance: OXYCODONE
     Indication: Lower respiratory tract infection
     Dosage: UNK
     Route: 065
     Dates: start: 20200429, end: 20200430
  6. TOCILIZUMAB [Concomitant]
     Active Substance: TOCILIZUMAB
     Indication: Cytokine release syndrome
     Dosage: 8 MG/KG
     Route: 065
     Dates: start: 20190727, end: 20190727
  7. AMOXICILLIN [Concomitant]
     Active Substance: AMOXICILLIN
     Indication: Lower respiratory tract infection
     Dosage: UNK
     Route: 065
     Dates: start: 20200428, end: 20200428
  8. DOXYCYCLINE [Concomitant]
     Active Substance: DOXYCYCLINE
     Indication: Lower respiratory tract infection
     Dosage: UNK
     Route: 065
     Dates: start: 20200428, end: 20200428
  9. PIPERACILLIN AND TAZOBACTAM [Concomitant]
     Active Substance: PIPERACILLIN SODIUM\TAZOBACTAM SODIUM
     Indication: Lower respiratory tract infection
     Dosage: 500 MG, UNK
     Route: 065
     Dates: start: 20200428, end: 20200501
  10. ENOXAPARIN SODIUM [Concomitant]
     Active Substance: ENOXAPARIN SODIUM
     Indication: Thrombosis prophylaxis
     Dosage: UNK
     Route: 065
     Dates: start: 20200428, end: 20200501
  11. AMOXICILLIN\CLAVULANATE POTASSIUM [Concomitant]
     Active Substance: AMOXICILLIN\CLAVULANATE POTASSIUM
     Indication: Lower respiratory tract infection
     Dosage: UNK
     Route: 065
     Dates: start: 20200420, end: 20200425
  12. AMOXICILLIN\CLAVULANATE POTASSIUM [Concomitant]
     Active Substance: AMOXICILLIN\CLAVULANATE POTASSIUM
     Dosage: UNK
     Route: 065
     Dates: start: 20200501, end: 20200505
  13. AZITHROMYCIN [Concomitant]
     Active Substance: AZITHROMYCIN
     Indication: Lower respiratory tract infection
     Dosage: UNK
     Route: 065
     Dates: start: 20200429, end: 20200501
  14. CALCIUM CARBONATE [Concomitant]
     Active Substance: CALCIUM CARBONATE
     Indication: General physical condition
     Dosage: UNK
     Route: 065
     Dates: start: 20190913
  15. CALCIUM CARBONATE [Concomitant]
     Active Substance: CALCIUM CARBONATE
     Route: 065
     Dates: start: 20190913, end: 20210521
  16. CLINDAMYCIN [Concomitant]
     Active Substance: CLINDAMYCIN
     Indication: Malignant melanoma
     Dosage: UNK
     Route: 065
     Dates: start: 20200701, end: 20200704

REACTIONS (2)
  - Squamous cell carcinoma [Recovered/Resolved]
  - Second primary malignancy [Recovered/Resolved]

NARRATIVE: CASE EVENT DATE: 20200501
